FAERS Safety Report 11057263 (Version 1)
Quarter: 2015Q2

REPORT INFORMATION
  Report Type: Spontaneous
  Country: JP (occurrence: JP)
  Receive Date: 20150422
  Receipt Date: 20150422
  Transmission Date: 20150821
  Serious: Yes (Other)
  Sender: FDA-Public Use
  Company Number: JP-MYLANLABS-2015M1012493

PATIENT

DRUGS (1)
  1. ALENDRONATE TAB. 35MG ^MYLAN^ [Suspect]
     Active Substance: ALENDRONATE SODIUM
     Indication: PRODUCT USED FOR UNKNOWN INDICATION
     Route: 048

REACTIONS (3)
  - Conjunctival haemorrhage [Unknown]
  - Oral mucosa haematoma [Unknown]
  - Oral mucosal blistering [Recovering/Resolving]
